FAERS Safety Report 9383008 (Version 2)
Quarter: 2013Q3

REPORT INFORMATION
  Report Type: Spontaneous
  Country: IT (occurrence: IT)
  Receive Date: 20130703
  Receipt Date: 20130822
  Transmission Date: 20140515
  Serious: Yes (Hospitalization)
  Sender: FDA-Public Use
  Company Number: IT-CELGENEUS-083-21880-13063584

PATIENT
  Age: 66 Year
  Sex: Male
  Weight: 80 kg

DRUGS (4)
  1. REVLIMID [Suspect]
     Indication: MANTLE CELL LYMPHOMA
     Route: 048
     Dates: start: 20130226, end: 20130513
  2. LEVOXACIN [Concomitant]
     Indication: BRONCHITIS
     Dosage: 1000 MILLIGRAM
     Route: 048
  3. ROCEFIN [Concomitant]
     Indication: BRONCHITIS
     Route: 065
     Dates: start: 20130501, end: 20130510
  4. BENTELAN [Concomitant]
     Indication: BRONCHITIS
     Route: 065
     Dates: start: 20130501, end: 20130510

REACTIONS (5)
  - Hepatomegaly [Recovered/Resolved]
  - Cholecystitis chronic [Recovered/Resolved]
  - Erythema [Recovered/Resolved]
  - Transaminases increased [Recovered/Resolved]
  - Mantle cell lymphoma [Unknown]
